FAERS Safety Report 5640781-2 (Version None)
Quarter: 2008Q1

REPORT INFORMATION
  Report Type: 
  Country: None (occurrence: None)
  Receive Date: 20080227
  Receipt Date: 20080214
  Transmission Date: 20080703
  Serious: Yes (Hospitalization, Other)
  Sender: FDA-Public Use
  Company Number: JP-PURDUE-MAG_2008_0000647

PATIENT
  Age: 61 Year
  Sex: Female

DRUGS (10)
  1. THEOPHYLLINE [Suspect]
     Indication: ASTHMA
     Dosage: 200 MG, DAILY
     Route: 048
     Dates: start: 20030118, end: 20080131
  2. AMOXAPINE [Concomitant]
     Indication: NEURALGIA
     Dosage: 50 MG, DAILY
     Route: 048
     Dates: end: 20080131
  3. OXYCODONE HYDROCHLORIDE [Concomitant]
     Indication: CANCER PAIN
     Route: 048
     Dates: end: 20080131
  4. FENTANYL [Concomitant]
     Indication: CANCER PAIN
     Dosage: 10 MG, Q72H
     Route: 062
     Dates: end: 20080131
  5. SENNOSIDES [Concomitant]
     Indication: CONSTIPATION
     Dosage: 48 MG, PRN
     Route: 048
     Dates: end: 20080131
  6. NICORANDIL [Concomitant]
     Indication: ANGINA PECTORIS
     Dosage: 15 MG, DAILY
     Route: 048
     Dates: end: 20080131
  7. FAMOTIDINE [Concomitant]
     Indication: GASTRIC ULCER
     Dosage: 2 GRAM, DAILY
     Route: 048
     Dates: end: 20080131
  8. FLUVOXAMINE MALEATE [Concomitant]
     Indication: DEPRESSION
     Dosage: 25 MG, DAILY
     Route: 048
     Dates: end: 20080131
  9. LITHIUM CARBONATE [Concomitant]
     Indication: DEPRESSION
     Dosage: 200 MG, DAILY
     Route: 048
     Dates: end: 20080131
  10. VALPROATE SODIUM [Concomitant]
     Indication: DEPRESSION
     Dosage: 200 MG, DAILY
     Route: 048
     Dates: end: 20080131

REACTIONS (3)
  - ALTERED STATE OF CONSCIOUSNESS [None]
  - CONVULSION [None]
  - TACHYCARDIA [None]
